FAERS Safety Report 25424816 (Version 1)
Quarter: 2025Q2

REPORT INFORMATION
  Report Type: Spontaneous
  Country: US (occurrence: US)
  Receive Date: 20250611
  Receipt Date: 20250611
  Transmission Date: 20250716
  Serious: Yes (Other)
  Sender: AMGEN
  Company Number: US-AMGEN-USASP2025111063

PATIENT

DRUGS (2)
  1. PREDNISONE [Suspect]
     Active Substance: PREDNISONE
     Indication: Prostate cancer
     Dosage: 5 MILLIGRAM, QD
     Route: 065
  2. ABIRATERONE ACETATE [Suspect]
     Active Substance: ABIRATERONE ACETATE
     Indication: Prostate cancer
     Dosage: 1000 MILLIGRAM, QD
     Route: 065

REACTIONS (20)
  - Hypokalaemia [Unknown]
  - Gastrointestinal toxicity [Unknown]
  - Hepatotoxicity [Unknown]
  - Erectile dysfunction [Unknown]
  - Hyperglycaemia [Unknown]
  - Dyspnoea [Unknown]
  - Genitourinary symptom [Unknown]
  - Hot flush [Unknown]
  - Fatigue [Unknown]
  - Irritability [Unknown]
  - Cough [Unknown]
  - Anaemia [Unknown]
  - Vision blurred [Unknown]
  - Dry mouth [Unknown]
  - Dizziness [Unknown]
  - Gynaecomastia [Unknown]
  - Libido decreased [Unknown]
  - Hypertension [Unknown]
  - Insomnia [Unknown]
  - Headache [Unknown]
